FAERS Safety Report 11523838 (Version 1)
Quarter: 2015Q3

REPORT INFORMATION
  Report Type: Spontaneous
  Country: US (occurrence: US)
  Receive Date: 20150903
  Receipt Date: 20150903
  Transmission Date: 20151125
  Serious: No
  Sender: FDA-Public Use
  Company Number: US-ELI_LILLY_AND_COMPANY-US201210007016

PATIENT
  Age: 30 Year
  Sex: Female

DRUGS (1)
  1. CYMBALTA [Suspect]
     Active Substance: DULOXETINE HYDROCHLORIDE
     Indication: NECK PAIN
     Dosage: 30 MG, QD

REACTIONS (8)
  - Mydriasis [Unknown]
  - Pupils unequal [Unknown]
  - Lethargy [Unknown]
  - Somnolence [Unknown]
  - Drug withdrawal syndrome [Unknown]
  - Photopsia [Unknown]
  - Vision blurred [Unknown]
  - Muscle twitching [Unknown]
